FAERS Safety Report 4901315-0 (Version None)
Quarter: 2006Q1

REPORT INFORMATION
  Report Type: 
  Country: None (occurrence: None)
  Receive Date: 20060202
  Receipt Date: 20060111
  Transmission Date: 20060701
  Serious: Yes (Hospitalization)
  Sender: FDA-Public Use
  Company Number: 0601-062

PATIENT
  Age: 92 Year
  Sex: Male

DRUGS (1)
  1. ALBUTEROL SULATE [Suspect]
     Indication: CHRONIC OBSTRUCTIVE PULMONARY DISEASE

REACTIONS (4)
  - BODY TEMPERATURE DECREASED [None]
  - BREATH SOUNDS ABNORMAL [None]
  - BRONCHOSPASM PARADOXICAL [None]
  - RESPIRATORY RATE INCREASED [None]
